FAERS Safety Report 10195918 (Version 2)
Quarter: 2014Q2

REPORT INFORMATION
  Report Type: Spontaneous
  Country: BR (occurrence: BR)
  Receive Date: 20140527
  Receipt Date: 20140527
  Transmission Date: 20141212
  Serious: Yes (Hospitalization)
  Sender: FDA-Public Use
  Company Number: BR-AMGEN-BRASP2014037473

PATIENT
  Age: 75 Year
  Sex: Female

DRUGS (1)
  1. PROLIA [Suspect]
     Indication: OSTEOPOROSIS
     Dosage: UNK
     Route: 065
     Dates: start: 201311

REACTIONS (7)
  - Nervous system disorder [Unknown]
  - Oedema mouth [Unknown]
  - Mastication disorder [Unknown]
  - Facial nerve disorder [Unknown]
  - Dizziness [Not Recovered/Not Resolved]
  - Pain in jaw [Unknown]
  - Pain in extremity [Not Recovered/Not Resolved]
